FAERS Safety Report 6825535-3 (Version None)
Quarter: 2010Q3

REPORT INFORMATION
  Report Type: 
  Country: None (occurrence: None)
  Receive Date: 20100708
  Receipt Date: 20061218
  Transmission Date: 20110219
  Serious: No
  Sender: FDA-Public Use
  Company Number: US-PFIZER INC-2006147900

PATIENT
  Sex: Female
  Weight: 77.11 kg

DRUGS (11)
  1. VARENICLINE [Suspect]
     Indication: SMOKING CESSATION THERAPY
     Route: 048
     Dates: start: 20061001, end: 20060101
  2. PREVACID [Concomitant]
  3. LASIX [Concomitant]
  4. VITAMINS [Concomitant]
  5. LIPITOR [Concomitant]
  6. PLAVIX [Concomitant]
  7. RISPERDAL [Concomitant]
  8. MONTELUKAST SODIUM [Concomitant]
  9. MOBIC [Concomitant]
  10. WARFARIN SODIUM [Concomitant]
  11. DIGOXIN [Concomitant]

REACTIONS (3)
  - NAUSEA [None]
  - NIGHTMARE [None]
  - VOMITING [None]
